FAERS Safety Report 22065537 (Version 2)
Quarter: 2023Q1

REPORT INFORMATION
  Report Type: Report from Study
  Country: IT (occurrence: IT)
  Receive Date: 20230306
  Receipt Date: 20230314
  Transmission Date: 20230418
  Serious: Yes (Life-Threatening, Hospitalization)
  Sender: FDA-Public Use
  Company Number: IT-PFIZER INC-PV202300040701

PATIENT
  Age: 58 Year
  Sex: Male

DRUGS (4)
  1. GEMTUZUMAB OZOGAMICIN [Suspect]
     Active Substance: GEMTUZUMAB OZOGAMICIN
     Indication: Acute myeloid leukaemia
     Dosage: 5 MG, DAILY
     Route: 042
     Dates: start: 20230207, end: 20230207
  2. CYTARABINE [Suspect]
     Active Substance: CYTARABINE
     Indication: Acute myeloid leukaemia
     Dosage: 1850 MG, DAILY
     Route: 042
     Dates: start: 20230207, end: 20230212
  3. DAUNORUBICIN HYDROCHLORIDE [Suspect]
     Active Substance: DAUNORUBICIN HYDROCHLORIDE
     Indication: Acute myeloid leukaemia
     Dosage: 92.5 MG, DAILY
     Route: 042
     Dates: start: 20230210, end: 20230212
  4. URSODIOL [Concomitant]
     Active Substance: URSODIOL
     Dosage: 450 MG, 1X/DAY
     Dates: start: 20230218, end: 20230218

REACTIONS (1)
  - Sepsis [Recovered/Resolved]

NARRATIVE: CASE EVENT DATE: 20230218
